FAERS Safety Report 7550232-9 (Version None)
Quarter: 2011Q2

REPORT INFORMATION
  Report Type: 
  Country: None (occurrence: None)
  Receive Date: 20110615
  Receipt Date: 20110610
  Transmission Date: 20111010
  Serious: Yes (Life-Threatening)
  Sender: FDA-Public Use
  Company Number: GB-TEVA-285441ISR

PATIENT
  Sex: Female

DRUGS (6)
  1. CYCLOSPORINE [Concomitant]
     Indication: PROPHYLAXIS AGAINST GRAFT VERSUS HOST DISEASE
  2. CYCLOPHOSPHAMIDE [Concomitant]
  3. BUSULFAN [Concomitant]
  4. CAMPATH [Concomitant]
  5. METHOTREXATE [Suspect]
     Indication: PROPHYLAXIS AGAINST GRAFT VERSUS HOST DISEASE
  6. THIOTEPA [Concomitant]

REACTIONS (5)
  - PULMONARY HAEMORRHAGE [None]
  - VENOOCCLUSIVE DISEASE [None]
  - BACTERIAL SEPSIS [None]
  - MUCOSAL INFLAMMATION [None]
  - CYTOMEGALOVIRUS INFECTION [None]
